FAERS Safety Report 5829736-2 (Version None)
Quarter: 2008Q3

REPORT INFORMATION
  Report Type: 
  Country: None (occurrence: None)
  Receive Date: 20080801
  Receipt Date: 20080731
  Transmission Date: 20090109
  Serious: Yes (Death, Disabling)
  Sender: FDA-Public Use
  Company Number: DK-BRISTOL-MYERS SQUIBB COMPANY-14283220

PATIENT
  Age: 84 Year
  Sex: Male

DRUGS (6)
  1. PRAVASTATIN SODIUM [Suspect]
     Indication: HYPERCHOLESTEROLAEMIA
  2. ESOMEPRAZOLE [Concomitant]
     Indication: HYPERTENSION
  3. BENDROFLUMETHIAZIDE [Concomitant]
  4. POTASSIUM CHLORIDE [Concomitant]
  5. SOTALOL HCL [Concomitant]
     Indication: HYPERTENSION
  6. ACETYLSALICYLIC ACID SRT [Concomitant]
     Indication: THROMBOSIS PROPHYLAXIS

REACTIONS (3)
  - ATRIAL FIBRILLATION [None]
  - PNEUMONIA [None]
  - RHABDOMYOLYSIS [None]
